FAERS Safety Report 6591145-9 (Version None)
Quarter: 2010Q1

REPORT INFORMATION
  Report Type: 
  Country: None (occurrence: None)
  Receive Date: 20100219
  Receipt Date: 20090706
  Transmission Date: 20100710
  Serious: No
  Sender: FDA-Public Use
  Company Number: US-BRISTOL-MYERS SQUIBB COMPANY-14691000

PATIENT
  Age: 30 Year
  Sex: Female
  Weight: 52 kg

DRUGS (1)
  1. KENALOG [Suspect]
     Indication: HYPERSENSITIVITY
     Dosage: 1 CC
     Dates: start: 20090401

REACTIONS (1)
  - INJECTION SITE ATROPHY [None]
